FAERS Safety Report 24758916 (Version 1)
Quarter: 2024Q4

REPORT INFORMATION
  Report Type: Spontaneous
  Country: CN (occurrence: CN)
  Receive Date: 20241220
  Receipt Date: 20241220
  Transmission Date: 20250115
  Serious: Yes (Hospitalization)
  Sender: ACCORD
  Company Number: CN-Accord-460657

PATIENT
  Age: 59 Year
  Sex: Female

DRUGS (20)
  1. ETOPOSIDE [Suspect]
     Active Substance: ETOPOSIDE
     Indication: Lactic acidosis
     Dosage: ONE CYCLE, ON DAY 11, 13 AND 14 OF POST ADMISSION
     Dates: start: 2023, end: 2023
  2. AMINO ACIDS [Concomitant]
     Active Substance: AMINO ACIDS
     Dosage: ON DAY 8-DAY 27 POST ADMISSION
     Dates: start: 2023, end: 2023
  3. CEFOPERAZONE\SULBACTAM [Concomitant]
     Active Substance: CEFOPERAZONE\SULBACTAM
     Indication: Anti-infective therapy
     Dosage: FROM DAY 1 TO DAY 15 POST ADMISSION
     Dates: start: 2023, end: 2023
  4. DEXTROSE [Concomitant]
     Active Substance: DEXTROSE MONOHYDRATE
     Dosage: ON DAY 7-DAY 12 POST ADMISSION
     Dates: start: 2023, end: 2023
  5. INSULIN NOS [Concomitant]
     Active Substance: INSULIN NOS
     Dosage: ON DAY 7, 9, 10, 11 POST ADMISSION
     Dates: start: 2023, end: 2023
  6. FAT EMULSION NOS [Concomitant]
     Active Substance: EGG PHOSPHOLIPIDS\SAFFLOWER OIL\SOYBEAN OIL
     Dosage: ON DAY 8-DAY 27 POST ADMISSION
     Dates: start: 2023, end: 2023
  7. SODIUM CHLORIDE [Concomitant]
     Active Substance: SODIUM CHLORIDE
     Dosage: ON DAY 1-DAY 3, ON DAY 5 POST ADMISSION
     Dates: start: 2023, end: 2023
  8. RIVAROXABAN [Concomitant]
     Active Substance: RIVAROXABAN
     Indication: Thrombosis prophylaxis
     Dosage: FROM DAY 3 OF POST ADMISSION TO DAY 15
     Dates: start: 2023, end: 2023
  9. SODIUM BICARBONATE [Concomitant]
     Active Substance: SODIUM BICARBONATE
     Dosage: FROM DAY 9 TO DAY 12 OF POST ADMISSION
     Dates: start: 2023, end: 2023
  10. DEXTROSE\SODIUM CHLORIDE [Concomitant]
     Active Substance: DEXTROSE\SODIUM CHLORIDE
     Dosage: ON DAY 1, 7, 8 POST ADMISSION
     Dates: start: 2023, end: 2023
  11. TOFACITINIB [Concomitant]
     Active Substance: TOFACITINIB
     Dosage: DAY 1 POST ADMISSION
     Dates: start: 2023, end: 2023
  12. SODIUM CHLORIDE [Concomitant]
     Active Substance: SODIUM CHLORIDE
     Dosage: ON DAY 9 AND DAY 10 POST ADMISSION
     Dates: start: 2023, end: 2023
  13. INSULIN NOS [Concomitant]
     Active Substance: INSULIN NOS
     Dosage: ON DAY 8 POST ADMISSION
     Dates: start: 2023, end: 2023
  14. ETOPOSIDE [Suspect]
     Active Substance: ETOPOSIDE
     Indication: Neuroendocrine carcinoma metastatic
     Dosage: ONE CYCLE, ON DAY 11, 13 AND 14 OF POST ADMISSION
     Dates: start: 2023, end: 2023
  15. ETOPOSIDE [Suspect]
     Active Substance: ETOPOSIDE
     Indication: Metastases to abdominal cavity
     Dosage: ONE CYCLE, ON DAY 11, 13 AND 14 OF POST ADMISSION
     Dates: start: 2023, end: 2023
  16. ETOPOSIDE [Suspect]
     Active Substance: ETOPOSIDE
     Indication: Neuroendocrine carcinoma of the cervix
     Dosage: ONE CYCLE, ON DAY 11, 13 AND 14 OF POST ADMISSION
     Dates: start: 2023, end: 2023
  17. SODIUM BICARBONATE [Concomitant]
     Active Substance: SODIUM BICARBONATE
     Dosage: ON DAY 8 OF POST ADMISSION
     Dates: start: 2023, end: 2023
  18. TOFACITINIB [Concomitant]
     Active Substance: TOFACITINIB
     Dosage: FROM DAY 9 TO DAY 15 POST ADMISSION
     Dates: start: 2023, end: 2023
  19. SODIUM CHLORIDE [Concomitant]
     Active Substance: SODIUM CHLORIDE
     Dosage: ON DAY 4, 6, 8, 11 POST ADMISSION
     Dates: start: 2023, end: 2023
  20. SODIUM CHLORIDE [Concomitant]
     Active Substance: SODIUM CHLORIDE
     Dosage: ON DAY 7 POST ADMISSION
     Dates: start: 2023, end: 2023

REACTIONS (1)
  - Tumour lysis syndrome [Recovering/Resolving]

NARRATIVE: CASE EVENT DATE: 20230101
